FAERS Safety Report 8312303-9 (Version None)
Quarter: 2012Q2

REPORT INFORMATION
  Report Type: 
  Country: None (occurrence: None)
  Receive Date: 20120425
  Receipt Date: 20120417
  Transmission Date: 20120825
  Serious: Yes (Hospitalization, Other)
  Sender: FDA-Public Use
  Company Number: CH-ELI_LILLY_AND_COMPANY-CH201203005357

PATIENT
  Sex: Male
  Weight: 100 kg

DRUGS (3)
  1. ASPIRIN [Concomitant]
  2. EFFIENT [Suspect]
     Indication: ACUTE MYOCARDIAL INFARCTION
     Dosage: 60 MG, SINGLE LOADING DOSE
     Dates: start: 20110110
  3. EFFIENT [Suspect]
     Dosage: 10 MG, QD
     Dates: end: 20120110

REACTIONS (1)
  - ACUTE MYOCARDIAL INFARCTION [None]
